FAERS Safety Report 7208619-X (Version None)
Quarter: 2011Q1

REPORT INFORMATION
  Report Type: 
  Country: None (occurrence: None)
  Receive Date: 20110104
  Receipt Date: 20101229
  Transmission Date: 20110831
  Serious: Yes (Hospitalization, Other)
  Sender: FDA-Public Use
  Company Number: JP-ROCHE-739940

PATIENT
  Sex: Female

DRUGS (24)
  1. IRINOTECAN HYDROCHLORIDE [Suspect]
     Dosage: REPORTED AS: CAMPTO(IRINOTECAN HYDROCHLORIDE)
     Route: 041
     Dates: start: 20100811, end: 20101013
  2. BEVACIZUMAB [Suspect]
     Indication: COLON CANCER
     Route: 041
     Dates: start: 20100811, end: 20101013
  3. IRINOTECAN HYDROCHLORIDE [Suspect]
     Route: 041
     Dates: start: 20101119, end: 20101119
  4. LEUCOVORIN CALCIUM [Suspect]
     Route: 041
     Dates: start: 20101215, end: 20101215
  5. VOLTAREN [Concomitant]
     Route: 048
  6. FLUOROURACIL [Suspect]
     Indication: COLON CANCER
     Dosage: ROUTE: INTRAVENOUS BOLUS
     Route: 041
     Dates: start: 20100811, end: 20101013
  7. FLUOROURACIL [Suspect]
     Route: 041
     Dates: start: 20101215, end: 20101215
  8. MAGNESIUM OXIDE [Concomitant]
     Indication: COLON CANCER
     Route: 048
  9. BEVACIZUMAB [Suspect]
     Route: 041
     Dates: start: 20101215, end: 20101215
  10. IRINOTECAN HYDROCHLORIDE [Suspect]
     Route: 041
     Dates: start: 20101215, end: 20101215
  11. FLUOROURACIL [Suspect]
     Dosage: ROUTE: INTRAVENOUS DRIP
     Route: 041
     Dates: end: 20101015
  12. DAI-KENCHU-TO [Concomitant]
     Dosage: REPORTED AS:DAI-KENCHU-TO(DAI-KENCHU-TO), FORM: GRANULATED POWDER
     Route: 048
  13. BEVACIZUMAB [Suspect]
     Route: 041
     Dates: start: 20101119, end: 20101119
  14. LEUCOVORIN CALCIUM [Suspect]
     Indication: COLON CANCER
     Dosage: REPORTED AS: LEVOFOLINATE(LEVOFOLINATE CALCIUM)
     Route: 041
     Dates: start: 20100811, end: 20101013
  15. PYRIDOXAL PHOSPHATE [Concomitant]
     Dosage: REPORTED AS:PYDOXAL TAB(PYRIDOXAL PHOSPHATE
     Route: 048
  16. KETOPROFEN [Concomitant]
     Route: 062
  17. FLUOROURACIL [Suspect]
     Route: 041
     Dates: start: 20101215, end: 20101217
  18. SELBEX [Concomitant]
     Dosage: REPORTED AS : SELBEX (TEPRENONE)
     Route: 048
  19. FLUOROURACIL [Suspect]
     Dosage: ROUTE:INTRAVENOUS BOLUS
     Route: 041
     Dates: start: 20101119, end: 20101119
  20. FLUOROURACIL [Suspect]
     Dosage: ROUTE:INTRAVENOUS DRIP
     Route: 041
     Dates: end: 20101121
  21. LEUCOVORIN CALCIUM [Suspect]
     Route: 041
     Dates: start: 20101119, end: 20101119
  22. TAKEPRON [Concomitant]
     Route: 048
  23. GABAPENTIN [Concomitant]
     Route: 048
  24. HACHIAZULE [Concomitant]
     Dosage: OROPHARINGEAL
     Route: 050

REACTIONS (5)
  - BACK PAIN [None]
  - SEPSIS [None]
  - SPINAL COMPRESSION FRACTURE [None]
  - DIARRHOEA [None]
  - URINARY TRACT INFECTION [None]
